FAERS Safety Report 7657929-0 (Version None)
Quarter: 2011Q3

REPORT INFORMATION
  Report Type: 
  Country: None (occurrence: None)
  Receive Date: 20110805
  Receipt Date: 20110713
  Transmission Date: 20111222
  Serious: No
  Sender: FDA-Public Use
  Company Number: US-BIOGENIDEC-2011BI026152

PATIENT
  Age: 41 Year
  Sex: Female

DRUGS (1)
  1. AVONEX [Suspect]
     Indication: MULTIPLE SCLEROSIS
     Route: 030
     Dates: start: 20110712

REACTIONS (8)
  - ANXIETY [None]
  - FRUSTRATION [None]
  - HEADACHE [None]
  - INJURY ASSOCIATED WITH DEVICE [None]
  - DEPRESSION [None]
  - CHEST PAIN [None]
  - MYALGIA [None]
  - MUSCULOSKELETAL PAIN [None]
